FAERS Safety Report 7901685-5 (Version None)
Quarter: 2011Q4

REPORT INFORMATION
  Report Type: 
  Country: None (occurrence: None)
  Receive Date: 20111108
  Receipt Date: 20111104
  Transmission Date: 20120403
  Serious: No
  Sender: FDA-Public Use
  Company Number: US-PFIZER INC-2011270883

PATIENT
  Sex: Male
  Weight: 79.365 kg

DRUGS (3)
  1. LEVOTHYROXINE [Concomitant]
     Indication: HYPOTHYROIDISM
     Dosage: UNK
  2. IBUPROFEN (ADVIL) [Suspect]
     Indication: CHILLS
     Dosage: 200 MG, AS NEEDED
     Route: 048
     Dates: start: 20111028, end: 20111103
  3. IBUPROFEN (ADVIL) [Suspect]
     Indication: HEADACHE

REACTIONS (2)
  - HYPERHIDROSIS [None]
  - STRESS [None]
